FAERS Safety Report 19601472 (Version 2)
Quarter: 2022Q1

REPORT INFORMATION
  Report Type: Spontaneous
  Country: US (occurrence: US)
  Receive Date: 20210722
  Receipt Date: 20220120
  Transmission Date: 20220424
  Serious: No
  Sender: FDA-Public Use
  Company Number: US-SEATTLE GENETICS-2020SGN02281

PATIENT
  Sex: Female

DRUGS (17)
  1. TUKYSA [Suspect]
     Active Substance: TUCATINIB
     Indication: Breast cancer female
     Dosage: 150 MG
  2. TUKYSA [Suspect]
     Active Substance: TUCATINIB
     Dosage: 150 MG
  3. TUKYSA [Suspect]
     Active Substance: TUCATINIB
     Dosage: 150 MG
  4. CAPECITABINE [Concomitant]
     Active Substance: CAPECITABINE
  5. HERCEPTIN [Concomitant]
     Active Substance: TRASTUZUMAB
  6. ACYCLOVIR SODIUM [Concomitant]
     Active Substance: ACYCLOVIR SODIUM
  7. BIOTIN [Concomitant]
     Active Substance: BIOTIN
  8. FLUCONAZOLE [Concomitant]
     Active Substance: FLUCONAZOLE
  9. IMODIUM [Concomitant]
     Active Substance: LOPERAMIDE HYDROCHLORIDE
  10. LACTULOSE [Concomitant]
     Active Substance: LACTULOSE
  11. METHYLPHENIDATE [Concomitant]
     Active Substance: METHYLPHENIDATE
  12. NAPROXEN [Concomitant]
     Active Substance: NAPROXEN
  13. OLMESARTAN [Concomitant]
     Active Substance: OLMESARTAN
  14. ONDANSETRON [Concomitant]
     Active Substance: ONDANSETRON
  15. TYLENOL [Concomitant]
     Active Substance: ACETAMINOPHEN
  16. VENLAFAXINE [Concomitant]
     Active Substance: VENLAFAXINE HYDROCHLORIDE
  17. VIACTIV CALCIUM PLUS VITAMIN D + K [Concomitant]

REACTIONS (10)
  - Balance disorder [Unknown]
  - Dry mouth [Unknown]
  - Dry eye [Unknown]
  - Fingerprint loss [Not Recovered/Not Resolved]
  - Skin discolouration [Unknown]
  - Fatigue [Unknown]
  - Palmar-plantar erythrodysaesthesia syndrome [Unknown]
  - Rash [Unknown]
  - Nausea [Recovered/Resolved]
  - Diarrhoea [Recovered/Resolved]
